FAERS Safety Report 16714786 (Version 7)
Quarter: 2020Q2

REPORT INFORMATION
  Report Type: Spontaneous
  Country: GB (occurrence: GB)
  Receive Date: 20190819
  Receipt Date: 20200404
  Transmission Date: 20200713
  Serious: Yes (Other)
  Sender: FDA-Public Use
  Company Number: PHHY2019GB190161

PATIENT
  Age: 86 Year
  Sex: Male
  Weight: 91 kg

DRUGS (5)
  1. ELTROMBOPAG [Suspect]
     Active Substance: ELTROMBOPAG
     Dosage: 75 MG
     Route: 048
     Dates: start: 2008
  2. AZATHIOPRINE. [Concomitant]
     Active Substance: AZATHIOPRINE
     Indication: PRODUCT USED FOR UNKNOWN INDICATION
     Dosage: UNK
     Route: 065
  3. PREDNISOLONE. [Concomitant]
     Active Substance: PREDNISOLONE
     Indication: PRODUCT USED FOR UNKNOWN INDICATION
     Dosage: UNK
     Route: 065
  4. LANSOPRAZOLE. [Concomitant]
     Active Substance: LANSOPRAZOLE
     Indication: PRODUCT USED FOR UNKNOWN INDICATION
     Dosage: UNK
     Route: 065
  5. ELTROMBOPAG [Suspect]
     Active Substance: ELTROMBOPAG
     Indication: IMMUNE THROMBOCYTOPENIA
     Dosage: 50 MG, QD
     Route: 048
     Dates: start: 2006, end: 20190902

REACTIONS (9)
  - Renal function test abnormal [Not Recovered/Not Resolved]
  - Philadelphia chromosome positive [Not Recovered/Not Resolved]
  - Anaemia [Unknown]
  - Chronic myeloid leukaemia recurrent [Not Recovered/Not Resolved]
  - White blood cell count increased [Recovered/Resolved]
  - Pallor [Unknown]
  - Hepatosplenomegaly [Unknown]
  - Fatigue [Unknown]
  - Haemoglobin decreased [Not Recovered/Not Resolved]

NARRATIVE: CASE EVENT DATE: 20190807
